FAERS Safety Report 24648866 (Version 1)
Quarter: 2024Q4

REPORT INFORMATION
  Report Type: Spontaneous
  Country: US (occurrence: US)
  Receive Date: 20241121
  Receipt Date: 20241121
  Transmission Date: 20250115
  Serious: Yes (Other)
  Sender: ABBVIE
  Company Number: US-ABBVIE-6005585

PATIENT

DRUGS (1)
  1. REFRESH CLASSIC [Suspect]
     Active Substance: POLYVINYL ALCOHOL\POVIDONE
     Indication: Dry eye
     Route: 047

REACTIONS (8)
  - Macular degeneration [Unknown]
  - Cataract [Unknown]
  - Deposit eye [Unknown]
  - Dry eye [Unknown]
  - Scleral discolouration [Unknown]
  - Photophobia [Unknown]
  - Eye laser surgery [Unknown]
  - Eye pain [Unknown]
